FAERS Safety Report 7754402-6 (Version None)
Quarter: 2011Q3

REPORT INFORMATION
  Report Type: 
  Country: None (occurrence: None)
  Receive Date: 20110915
  Receipt Date: 20110906
  Transmission Date: 20111222
  Serious: Yes (Disabling, Other)
  Sender: FDA-Public Use
  Company Number: US-ASTRAZENECA-2011SE46449

PATIENT
  Age: 83 Year
  Sex: Female

DRUGS (2)
  1. TOPROL-XL [Suspect]
     Route: 048
  2. NEXIUM [Suspect]
     Route: 048

REACTIONS (12)
  - MALAISE [None]
  - SPEECH DISORDER [None]
  - PAIN [None]
  - SPINAL OSTEOARTHRITIS [None]
  - EYE OPERATION [None]
  - DEAFNESS [None]
  - DYSPEPSIA [None]
  - DRUG DOSE OMISSION [None]
  - FALL [None]
  - DIABETES MELLITUS [None]
  - BLINDNESS UNILATERAL [None]
  - ARTHRITIS [None]
